FAERS Safety Report 5906117-4 (Version None)
Quarter: 2008Q4

REPORT INFORMATION
  Report Type: 
  Country: None (occurrence: None)
  Receive Date: 20081002
  Receipt Date: 20080925
  Transmission Date: 20090506
  Serious: Yes (Hospitalization)
  Sender: FDA-Public Use
  Company Number: PHEH2008US03656

PATIENT
  Sex: Female
  Weight: 73.6 kg

DRUGS (5)
  1. GLEEVEC [Suspect]
     Indication: CHRONIC MYELOID LEUKAEMIA
     Dosage: 400 MG, UNK
     Dates: start: 20051203, end: 20080229
  2. GLEEVEC [Suspect]
     Dosage: UNK
     Dates: start: 20080707
  3. ASPIRIN [Concomitant]
     Dosage: 81 MG, QOD
     Route: 048
  4. LASIX [Concomitant]
     Dosage: 20 MG, DAILY PRN
     Route: 048
  5. OMEPRAZOLE [Concomitant]
     Dosage: 20 MG, BID
     Route: 048

REACTIONS (15)
  - ABDOMINAL PAIN [None]
  - ALANINE AMINOTRANSFERASE INCREASED [None]
  - ASPARTATE AMINOTRANSFERASE INCREASED [None]
  - BILE DUCT OBSTRUCTION [None]
  - BLOOD ALKALINE PHOSPHATASE INCREASED [None]
  - CARBOHYDRATE ANTIGEN 19-9 INCREASED [None]
  - CHOLECYSTECTOMY [None]
  - FATIGUE [None]
  - HAEMOGLOBIN DECREASED [None]
  - JAUNDICE [None]
  - NAUSEA [None]
  - PANCREATIC CARCINOMA [None]
  - PANCREATICODUODENECTOMY [None]
  - PLATELET COUNT DECREASED [None]
  - WHITE BLOOD CELL DISORDER [None]
